FAERS Safety Report 8471921-8 (Version None)
Quarter: 2012Q2

REPORT INFORMATION
  Report Type: 
  Country: None (occurrence: None)
  Receive Date: 20120627
  Receipt Date: 20120619
  Transmission Date: 20120825
  Serious: Yes (Hospitalization, Other)
  Sender: FDA-Public Use
  Company Number: US-BAYER-2012-062447

PATIENT
  Age: 38 Year
  Sex: Female
  Weight: 99.773 kg

DRUGS (7)
  1. MOBIC [Concomitant]
     Dosage: 15 MG, QD
     Route: 048
     Dates: start: 20060814
  2. XANAX [Concomitant]
     Dosage: 0.5 MG, ONE EVERY 8 HOURS PRN
  3. ALLEGRA D 24 HOUR [Concomitant]
     Dosage: ONCE DAILY PRN
     Route: 048
     Dates: start: 20060814
  4. ADDERALL XR 10 [Concomitant]
     Indication: DEPRESSION
     Dosage: 5 MG ONE OR TWO EVERY DAY PRN
     Route: 048
     Dates: start: 20060814
  5. WELLBUTRIN XL [Concomitant]
     Indication: DEPRESSION
     Dosage: 300 MG, QD
     Route: 048
     Dates: start: 20060814
  6. YASMIN [Suspect]
     Dosage: UNK
     Dates: end: 20061030
  7. PROGESTERONE [Concomitant]
     Dosage: 25 MG, ? TEASPOON TWICE DAILY 7 TO 10 DAYS BEFORE MENSES.
     Dates: start: 20060814

REACTIONS (2)
  - PULMONARY EMBOLISM [None]
  - CHOLELITHIASIS [None]
